FAERS Safety Report 6421293-5 (Version None)
Quarter: 2009Q4

REPORT INFORMATION
  Report Type: 
  Country: None (occurrence: None)
  Receive Date: 20091029
  Receipt Date: 20091029
  Transmission Date: 20100525
  Serious: Yes (Disabling)
  Sender: FDA-Public Use
  Company Number: None

PATIENT
  Age: 41 Year
  Sex: Male
  Weight: 138.2 kg

DRUGS (6)
  1. ASTEPRO [Suspect]
     Indication: MULTIPLE ALLERGIES
     Dosage: 2 SPRAYS DAILY NASAL MIST
     Dates: start: 20090922
  2. ASTEPRO [Suspect]
     Indication: SINUSITIS
     Dosage: 2 SPRAYS DAILY NASAL MIST
     Dates: start: 20090922
  3. AUGMENTIN [Concomitant]
  4. AVALIDE [Concomitant]
  5. PRILOSEC [Concomitant]
  6. ASPIRIN [Concomitant]

REACTIONS (2)
  - DYSGEUSIA [None]
  - HYPOSMIA [None]
